FAERS Safety Report 21299940 (Version 1)
Quarter: 2022Q3

REPORT INFORMATION
  Report Type: Spontaneous
  Country: US (occurrence: US)
  Receive Date: 20220906
  Receipt Date: 20220906
  Transmission Date: 20221026
  Serious: No
  Sender: FDA-Public Use
  Company Number: US-BIOGEN-2018BI00605117

PATIENT
  Sex: Male

DRUGS (1)
  1. TECFIDERA [Suspect]
     Active Substance: DIMETHYL FUMARATE
     Indication: Multiple sclerosis
     Dosage: MAINTENANCE DOSE
     Route: 050
     Dates: start: 20140620, end: 20180629

REACTIONS (2)
  - Hypoacusis [Not Recovered/Not Resolved]
  - Reading disorder [Not Recovered/Not Resolved]

NARRATIVE: CASE EVENT DATE: 20140101
